FAERS Safety Report 24082235 (Version 2)
Quarter: 2024Q3

REPORT INFORMATION
  Report Type: Spontaneous
  Country: JP (occurrence: JP)
  Receive Date: 20240712
  Receipt Date: 20240725
  Transmission Date: 20241016
  Serious: Yes (Hospitalization, Other)
  Sender: EMD SERONO INC
  Company Number: JP-Merck Healthcare KGaA-2024036714

PATIENT
  Age: 90 Year
  Sex: Female

DRUGS (4)
  1. METGLUCO [Suspect]
     Active Substance: METFORMIN HYDROCHLORIDE
     Indication: Type 2 diabetes mellitus
     Route: 048
  2. AMARYL [Concomitant]
     Active Substance: GLIMEPIRIDE
     Indication: Type 2 diabetes mellitus
  3. MITIGLINIDE CALCIUM HYDRATE\VOGLIBOSE [Concomitant]
     Active Substance: MITIGLINIDE CALCIUM HYDRATE\VOGLIBOSE
     Indication: Type 2 diabetes mellitus
  4. ANAGLIPTIN [Concomitant]
     Active Substance: ANAGLIPTIN
     Indication: Type 2 diabetes mellitus

REACTIONS (7)
  - Dehydration [Unknown]
  - Glycosylated haemoglobin increased [Unknown]
  - Circulatory collapse [Unknown]
  - Diabetic ketoacidosis [Unknown]
  - Prerenal failure [Unknown]
  - Hypervolaemia [Unknown]
  - Lactic acidosis [Unknown]
